FAERS Safety Report 6840310-1 (Version None)
Quarter: 2010Q3

REPORT INFORMATION
  Report Type: 
  Country: None (occurrence: None)
  Receive Date: 20100709
  Receipt Date: 20100624
  Transmission Date: 20110219
  Serious: Yes (Hospitalization)
  Sender: FDA-Public Use
  Company Number: AMAG201000225

PATIENT
  Age: 83 Year
  Sex: Female
  Weight: 42 kg

DRUGS (16)
  1. FERAHEME [Suspect]
     Indication: IRON DEFICIENCY ANAEMIA
     Dosage: 510 MG, SINGLE, INTRAVENOUS
     Route: 042
     Dates: start: 20100107, end: 20100107
  2. EPOETIN (EPOETIN ALFA) [Suspect]
     Dates: start: 20100426, end: 20100426
  3. ACCETAMINOPHEN (PARACETAMOL) [Concomitant]
  4. ASPIRIN [Concomitant]
  5. EPOGEN [Concomitant]
  6. VACCINES [Concomitant]
  7. VITAMIN B COMPLEX WITH C (ASCORBIC ACID, CALCIUM PANTOTHENATE, CYANOCO [Concomitant]
  8. HECTOROL [Concomitant]
  9. LEVOTHYROXINE SODIUM [Concomitant]
  10. LISINOPRIL (LOVASTATIN) [Concomitant]
  11. METOPROLOL TARTRATE [Concomitant]
  12. NIFEDIPINE [Concomitant]
  13. PLENDIL [Concomitant]
  14. PRILOSEC (OMEPRAZOLE) [Concomitant]
  15. RELAFEN [Concomitant]
  16. RENAGEL [Concomitant]

REACTIONS (9)
  - ANAPHYLACTIC REACTION [None]
  - BLOOD GLUCOSE INCREASED [None]
  - CHEST PAIN [None]
  - DRUG HYPERSENSITIVITY [None]
  - GASTROINTESTINAL INFLAMMATION [None]
  - HYPOTENSION [None]
  - ILEUS [None]
  - LOSS OF CONSCIOUSNESS [None]
  - RESPIRATORY DISTRESS [None]
